FAERS Safety Report 4422992-7 (Version None)
Quarter: 2004Q3

REPORT INFORMATION
  Report Type: 
  Country: None (occurrence: None)
  Receive Date: 20040810
  Receipt Date: 20040727
  Transmission Date: 20050211
  Serious: Yes (Other)
  Sender: FDA-Public Use
  Company Number: 2004S1002191

PATIENT
  Age: 44 Year
  Sex: Female
  Weight: 86.1834 kg

DRUGS (7)
  1. EXTEDNED PHENYTOIN SODIUM CAPSULES 100 MG MYLAN [Suspect]
     Indication: CONVULSION PROPHYLAXIS
     Dosage: 200MG Q AM AND 300MG HS, ORAL
     Route: 048
     Dates: start: 20000101
  2. OLANZAPINE [Concomitant]
  3. ESCITALOPRAM OXALATE [Concomitant]
  4. CLONAZEPAM [Concomitant]
  5. APAP/BUTALBITAL/CAFFEINE [Concomitant]
  6. HYDROCODONE BITARTRATE AND ACETAMINOPHEN [Concomitant]
  7. GINSENG/COENZYME Q10/VITAMINS/VITAMIN B12 [Concomitant]

REACTIONS (3)
  - ANTICONVULSANT DRUG LEVEL DECREASED [None]
  - CONFUSIONAL STATE [None]
  - MIGRAINE [None]
